FAERS Safety Report 5576920-1 (Version None)
Quarter: 2007Q4

REPORT INFORMATION
  Report Type: 
  Country: None (occurrence: None)
  Receive Date: 20071228
  Receipt Date: 20071218
  Transmission Date: 20080405
  Serious: Yes (Hospitalization)
  Sender: FDA-Public Use
  Company Number: US-ABBOTT-07P-163-0370237-00

PATIENT
  Sex: Male
  Weight: 63.56 kg

DRUGS (4)
  1. HUMIRA [Suspect]
     Indication: CROHN'S DISEASE
     Route: 058
     Dates: start: 20060801
  2. HUMIRA [Suspect]
     Dosage: SYRINGE
     Route: 058
     Dates: start: 20050101, end: 20060801
  3. HUMIRA [Suspect]
     Dosage: PEN
     Route: 058
     Dates: start: 20060801
  4. HUMIRA [Suspect]
     Indication: CROHN'S DISEASE
     Dates: start: 20050101, end: 20060801

REACTIONS (3)
  - ACCIDENTAL EXPOSURE [None]
  - INJECTION SITE PAIN [None]
  - INTESTINAL OBSTRUCTION [None]
